FAERS Safety Report 8276406-X (Version None)
Quarter: 2012Q2

REPORT INFORMATION
  Report Type: 
  Country: None (occurrence: None)
  Receive Date: 20120412
  Receipt Date: 20120403
  Transmission Date: 20120825
  Serious: Yes (Hospitalization, Other)
  Sender: FDA-Public Use
  Company Number: CA-BRISTOL-MYERS SQUIBB COMPANY-16400632

PATIENT
  Age: 61 Year
  Sex: Male

DRUGS (4)
  1. IPILIMUMAB [Suspect]
     Indication: MALIGNANT MELANOMA
     Dosage: NO OF COURSE:04
     Route: 042
     Dates: start: 20111012, end: 20111214
  2. SYNTHROID [Concomitant]
     Route: 048
     Dates: start: 20111217
  3. IBUPROFEN [Concomitant]
     Dosage: Q4H
     Route: 048
     Dates: start: 20100101
  4. TYLENOL (CAPLET) [Concomitant]
     Dosage: STRENGTH:500MG
     Route: 048
     Dates: start: 20100101

REACTIONS (3)
  - OEDEMA PERIPHERAL [None]
  - MUSCULAR WEAKNESS [None]
  - COLITIS MICROSCOPIC [None]
